FAERS Safety Report 11918940 (Version 2)
Quarter: 2016Q1

REPORT INFORMATION
  Report Type: Spontaneous
  Country: US (occurrence: US)
  Receive Date: 20160115
  Receipt Date: 20160301
  Transmission Date: 20160526
  Serious: No
  Sender: FDA-Public Use
  Company Number: US-JNJFOC-20151214502

PATIENT
  Age: 70 Year
  Sex: Female
  Weight: 65.77 kg

DRUGS (11)
  1. HYDROCHLOROTHIAZID [Concomitant]
     Active Substance: HYDROCHLOROTHIAZIDE
     Indication: BLOOD CALCIUM DECREASED
     Route: 065
  2. MELATONIN [Concomitant]
     Active Substance: MELATONIN
     Indication: SLEEP DISORDER THERAPY
     Route: 065
  3. GABAPENTIN. [Suspect]
     Active Substance: GABAPENTIN
     Indication: EAR PAIN
     Route: 048
     Dates: start: 2015
  4. FAMOTIDINE. [Concomitant]
     Active Substance: FAMOTIDINE
     Indication: GASTROOESOPHAGEAL REFLUX DISEASE
     Route: 048
  5. SIMPONI [Suspect]
     Active Substance: GOLIMUMAB
     Indication: PSORIATIC ARTHROPATHY
     Route: 058
     Dates: start: 2014, end: 20150815
  6. AMBIEN [Concomitant]
     Active Substance: ZOLPIDEM TARTRATE
     Indication: SLEEP DISORDER THERAPY
     Route: 065
     Dates: start: 2014
  7. ASPIRIN. [Concomitant]
     Active Substance: ASPIRIN
     Route: 065
  8. MELOXICAM. [Concomitant]
     Active Substance: MELOXICAM
     Indication: PAIN
     Route: 065
     Dates: start: 2014
  9. RESTASIS [Concomitant]
     Active Substance: CYCLOSPORINE
     Indication: DRY EYE
     Route: 065
     Dates: start: 2011
  10. VYTORIN [Concomitant]
     Active Substance: EZETIMIBE\SIMVASTATIN
     Indication: BLOOD CHOLESTEROL INCREASED
     Route: 065
  11. NORITATE [Concomitant]
     Active Substance: METRONIDAZOLE
     Indication: ROSACEA
     Route: 065
     Dates: start: 2011

REACTIONS (7)
  - Thinking abnormal [Unknown]
  - Mass [Unknown]
  - Localised oedema [Unknown]
  - Inflammation [Unknown]
  - Alopecia [Not Recovered/Not Resolved]
  - Blood cholesterol increased [Unknown]
  - Oral herpes [Unknown]

NARRATIVE: CASE EVENT DATE: 2014
